FAERS Safety Report 16253603 (Version 2)
Quarter: 2019Q2

REPORT INFORMATION
  Report Type: Spontaneous
  Country: US (occurrence: US)
  Receive Date: 20190430
  Receipt Date: 20190501
  Transmission Date: 20190711
  Serious: Yes (Hospitalization, Other)
  Sender: FDA-Public Use
  Company Number: US-JNJFOC-20190436835

PATIENT
  Age: 47 Year
  Sex: Male
  Weight: 85.7 kg

DRUGS (9)
  1. IBUPROFEN. [Suspect]
     Active Substance: IBUPROFEN
     Indication: PRODUCT USED FOR UNKNOWN INDICATION
     Dosage: AS-NEEDED DOSES OF IBUPROFEN OVER THE 5 WEEKS PRIOR TO ADMISSION
     Route: 065
  2. FOLIC ACID. [Concomitant]
     Active Substance: FOLIC ACID
     Indication: PRODUCT USED FOR UNKNOWN INDICATION
     Route: 065
  3. THIAMINE. [Concomitant]
     Active Substance: THIAMINE
     Indication: PRODUCT USED FOR UNKNOWN INDICATION
     Route: 065
  4. TELAVANCIN [Suspect]
     Active Substance: TELAVANCIN
     Indication: BACTERAEMIA
     Dosage: INFUSIONS OF TELAVANCIN FOR 5 WEEKS VIA PERIPHERALLY INSERTED CENTRAL CATHETER (PICC)
     Route: 042
  5. IBUPROFEN. [Suspect]
     Active Substance: IBUPROFEN
     Route: 065
  6. VITAMINA B12 [Concomitant]
     Indication: PRODUCT USED FOR UNKNOWN INDICATION
     Route: 065
  7. TELAVANCIN [Suspect]
     Active Substance: TELAVANCIN
     Indication: STAPHYLOCOCCAL INFECTION
     Dosage: INFUSIONS OF TELAVANCIN FOR 5 WEEKS VIA PERIPHERALLY INSERTED CENTRAL CATHETER (PICC)
     Route: 042
  8. ATORVASTATIN [Concomitant]
     Active Substance: ATORVASTATIN
     Indication: PRODUCT USED FOR UNKNOWN INDICATION
     Route: 065
  9. ESCITALOPRAM [Concomitant]
     Active Substance: ESCITALOPRAM OXALATE
     Indication: PRODUCT USED FOR UNKNOWN INDICATION
     Route: 065

REACTIONS (6)
  - Tubulointerstitial nephritis [Recovering/Resolving]
  - Renal tubular injury [Recovering/Resolving]
  - Haemoglobin decreased [Unknown]
  - Acute kidney injury [Recovering/Resolving]
  - White blood cell count increased [Unknown]
  - Platelet count decreased [Unknown]
